FAERS Safety Report 7939964-8 (Version None)
Quarter: 2011Q4

REPORT INFORMATION
  Report Type: 
  Country: None (occurrence: None)
  Receive Date: 20111125
  Receipt Date: 20111122
  Transmission Date: 20120403
  Serious: Yes (Death, Other)
  Sender: FDA-Public Use
  Company Number: PHEH2011US02587

PATIENT
  Sex: Female

DRUGS (12)
  1. HYDROCHLOROTHIAZIDE [Concomitant]
     Dosage: 12.5 MG, QD
  2. ACETAMINOPHEN [Concomitant]
     Dosage: 650 MG, BID
     Route: 048
  3. BONIVA [Concomitant]
     Dosage: UNK
     Route: 042
  4. RECLAST [Suspect]
     Indication: OSTEOPOROSIS POSTMENOPAUSAL
     Route: 042
  5. CALCIUM [Concomitant]
     Dosage: 600 MG, BID
     Route: 048
  6. LYRICA [Concomitant]
     Dosage: 50 MG, UNK
     Route: 048
  7. EYE DROPS [Concomitant]
  8. COLCHICINE [Concomitant]
     Dosage: 0.6 MG, QD
     Route: 048
  9. OSTEO BI-FLEX [Concomitant]
     Route: 048
  10. VITAMIN D [Concomitant]
  11. FOSAMAX [Concomitant]
  12. PREDNISONE TAB [Concomitant]
     Dosage: 5 MG, QD

REACTIONS (30)
  - DEATH [None]
  - ACTINIC KERATOSIS [None]
  - FOOT DEFORMITY [None]
  - POOR PERIPHERAL CIRCULATION [None]
  - OEDEMA PERIPHERAL [None]
  - MUSCULOSKELETAL DISCOMFORT [None]
  - OSTEOARTHRITIS [None]
  - KNEE DEFORMITY [None]
  - HYPOKINESIA [None]
  - GOUT [None]
  - GASTRIC DILATATION [None]
  - HUNTINGTON'S DISEASE [None]
  - JOINT STIFFNESS [None]
  - MACULAR DEGENERATION [None]
  - ARTHRALGIA [None]
  - MUSCULOSKELETAL PAIN [None]
  - PAIN [None]
  - SKIN WARM [None]
  - LIMB DISCOMFORT [None]
  - FATIGUE [None]
  - POLYARTHRITIS [None]
  - KYPHOSCOLIOSIS [None]
  - VISION BLURRED [None]
  - DRY SKIN [None]
  - JOINT CREPITATION [None]
  - JOINT RANGE OF MOTION DECREASED [None]
  - SKIN ULCER [None]
  - SKIN TURGOR DECREASED [None]
  - JOINT DISLOCATION [None]
  - GAIT DISTURBANCE [None]
